FAERS Safety Report 24034413 (Version 4)
Quarter: 2024Q3

REPORT INFORMATION
  Report Type: Report from Study
  Country: US (occurrence: US)
  Receive Date: 20240701
  Receipt Date: 20240710
  Transmission Date: 20241017
  Serious: No
  Sender: ROCHE
  Company Number: US-ROCHE-3545633

PATIENT
  Age: 15 Year
  Sex: Male
  Weight: 54.2 kg

DRUGS (1)
  1. EVRYSDI [Suspect]
     Active Substance: RISDIPLAM
     Indication: Spinal muscular atrophy
     Dosage: (6.6 ML)
     Route: 050
     Dates: start: 20201113

REACTIONS (2)
  - Yellow skin [Recovered/Resolved]
  - Asthenia [Unknown]
